FAERS Safety Report 23919104 (Version 1)
Quarter: 2024Q2

REPORT INFORMATION
  Report Type: Spontaneous
  Country: US (occurrence: US)
  Receive Date: 20240530
  Receipt Date: 20240530
  Transmission Date: 20240716
  Serious: Yes (Hospitalization, Other)
  Sender: FDA-Public Use
  Company Number: US-ARBOR PHARMACEUTICALS, LLC-US-2024AZR000627

PATIENT
  Age: 63 Year
  Sex: Male

DRUGS (2)
  1. IVERMECTIN [Suspect]
     Active Substance: IVERMECTIN
     Indication: COVID-19
     Dosage: UNK
     Route: 065
  2. DIETHYLTOLUAMIDE [Suspect]
     Active Substance: DIETHYLTOLUAMIDE
     Indication: COVID-19
     Dosage: UNK
     Route: 065

REACTIONS (9)
  - Multiple organ dysfunction syndrome [Unknown]
  - Encephalopathy [Unknown]
  - Acute kidney injury [Unknown]
  - Hepatic failure [Unknown]
  - Pneumonia [Unknown]
  - Sepsis [Unknown]
  - Mental status changes [Unknown]
  - Toxicity to various agents [Unknown]
  - Product use in unapproved indication [Unknown]
